FAERS Safety Report 10716502 (Version 3)
Quarter: 2015Q3

REPORT INFORMATION
  Report Type: Report from Study
  Country: DK (occurrence: DK)
  Receive Date: 20150116
  Receipt Date: 20150709
  Transmission Date: 20151125
  Serious: Yes (Hospitalization)
  Sender: FDA-Public Use
  Company Number: DK-JNJFOC-20150110236

PATIENT
  Age: 10 Year
  Sex: Female
  Weight: 23.2 kg

DRUGS (3)
  1. REMICADE [Suspect]
     Active Substance: INFLIXIMAB
     Indication: INFLAMMATORY BOWEL DISEASE
     Route: 042
     Dates: start: 20141128
  2. PREDNISONE. [Suspect]
     Active Substance: PREDNISONE
     Indication: INFLAMMATORY BOWEL DISEASE
     Route: 065
     Dates: start: 20141128
  3. IMUREL [Suspect]
     Active Substance: AZATHIOPRINE SODIUM
     Indication: INFLAMMATORY BOWEL DISEASE
     Route: 065

REACTIONS (3)
  - Dehydration [Recovered/Resolved]
  - Cytomegalovirus infection [Recovered/Resolved]
  - Colitis ulcerative [Recovered/Resolved]

NARRATIVE: CASE EVENT DATE: 20141204
